FAERS Safety Report 7916452-6 (Version None)
Quarter: 2011Q4

REPORT INFORMATION
  Report Type: 
  Country: None (occurrence: None)
  Receive Date: 20111114
  Receipt Date: 20111027
  Transmission Date: 20120403
  Serious: Yes (Hospitalization)
  Sender: FDA-Public Use
  Company Number: 2011SP003746

PATIENT
  Sex: Female

DRUGS (28)
  1. AMLODIPINE [Concomitant]
  2. CARISOPRODOL [Concomitant]
  3. DIGOXIN [Concomitant]
  4. ACETAMINOPHEN AND HYDROCODONE BITARTRATE [Concomitant]
  5. ROSUVASTATIN [Concomitant]
  6. ESOMEPRAZOLE [Concomitant]
  7. FORTEO [Concomitant]
  8. CALCIUM CARBONATE W/VITAMIN D [Concomitant]
  9. DICYCLOMINE [Concomitant]
  10. LORAZEPAM [Concomitant]
  11. NAMENDA [Concomitant]
  12. XOPENEX [Suspect]
     Indication: DYSPNOEA
     Dosage: 0.063 MG/3 ML; Q6H; INHALATION
     Route: 055
     Dates: start: 20090313
  13. MEMANTINE [Concomitant]
  14. HALOPERIDOL [Concomitant]
  15. PSYLLIUM [Concomitant]
  16. SUCRALFATE [Concomitant]
  17. VITAMIN D [Concomitant]
  18. ACETAMINOPHEN [Concomitant]
  19. ASPIRIN [Concomitant]
  20. ESOMEPRAZOLE [Concomitant]
  21. FLUTICASONE PROPIONATE/SALMETEROL [Concomitant]
  22. LEVOTHYROXINE SODIUM [Concomitant]
  23. ATROPINE W/DIPHENOXYLATE [Concomitant]
  24. PREDNISONE TAB [Concomitant]
  25. SACCHAROMYCES BOULARDII [Concomitant]
  26. POTASSIUM CHLORIDE [Concomitant]
  27. METAXALONE [Concomitant]
  28. METOPROLOL TARTRATE [Concomitant]

REACTIONS (8)
  - DELIRIUM [None]
  - DEPRESSION [None]
  - CARDIOACTIVE DRUG LEVEL INCREASED [None]
  - CONSTIPATION [None]
  - URINARY TRACT INFECTION [None]
  - BLOOD ALKALINE PHOSPHATASE INCREASED [None]
  - PROTEIN TOTAL DECREASED [None]
  - BLOOD ALBUMIN DECREASED [None]
